FAERS Safety Report 6293621-5 (Version None)
Quarter: 2009Q3

REPORT INFORMATION
  Report Type: 
  Country: None (occurrence: None)
  Receive Date: 20090803
  Receipt Date: 20090722
  Transmission Date: 20100115
  Serious: Yes (Hospitalization)
  Sender: FDA-Public Use
  Company Number: DE-RANBAXY-2009RR-25556

PATIENT
  Age: 63 Year
  Sex: Male

DRUGS (10)
  1. ZIDOVUDINE [Suspect]
     Indication: ACUTE HIV INFECTION
     Dosage: UNK
     Dates: start: 19940101
  2. ZIDOVUDINE [Suspect]
     Dosage: UNK
     Dates: start: 20000101
  3. ZALCITABINE [Suspect]
     Indication: ACUTE HIV INFECTION
     Dosage: UNK
     Dates: start: 19940101
  4. SAQUINAVIR [Suspect]
     Indication: ACUTE HIV INFECTION
     Dosage: UNK
     Dates: start: 19970101
  5. LAMIVUDINE [Suspect]
     Indication: ACUTE HIV INFECTION
     Dosage: UNK
     Dates: start: 20000101
  6. ABACAVIR SULFATE [Suspect]
     Indication: ACUTE HIV INFECTION
     Dosage: UNK
     Dates: start: 20000101
  7. TENOFOVIR DISOPROXIL FUMARATE [Suspect]
     Indication: ACUTE HIV INFECTION
     Dosage: UNK
     Dates: start: 20020401
  8. EMTRICITABINE [Suspect]
     Indication: ACUTE HIV INFECTION
     Dosage: UNK
     Dates: start: 20020401
  9. EFAVIRENZ [Suspect]
     Indication: ACUTE HIV INFECTION
     Dosage: UNK
     Dates: start: 20000101
  10. EFAVIRENZ [Suspect]
     Dosage: UNK
     Dates: start: 20020401

REACTIONS (1)
  - MYELODYSPLASTIC SYNDROME [None]
